FAERS Safety Report 11210744 (Version 1)
Quarter: 2015Q2

REPORT INFORMATION
  Report Type: Spontaneous
  Country: US (occurrence: US)
  Receive Date: 20150622
  Receipt Date: 20150622
  Transmission Date: 20150821
  Serious: No
  Sender: FDA-Public Use
  Company Number: US-TAKEDA-2014TUS003771

PATIENT
  Sex: Male

DRUGS (1)
  1. KAZANO [Suspect]
     Active Substance: ALOGLIPTIN BENZOATE\METFORMIN HYDROCHLORIDE
     Indication: TYPE 2 DIABETES MELLITUS
     Dosage: 12.5 MG / 1000MG, BID
     Route: 048

REACTIONS (1)
  - Gastrooesophageal reflux disease [Unknown]
